FAERS Safety Report 14992477 (Version 1)
Quarter: 2018Q2

REPORT INFORMATION
  Report Type: Spontaneous
  Country: JP (occurrence: JP)
  Receive Date: 20180609
  Receipt Date: 20180609
  Transmission Date: 20180711
  Serious: Yes (Hospitalization)
  Sender: FDA-Public Use
  Company Number: JP-AMGEN-JPNSP2018078415

PATIENT
  Age: 62 Year
  Sex: Male
  Weight: 58 kg

DRUGS (3)
  1. INLYTA [Concomitant]
     Active Substance: AXITINIB
     Dosage: 5 MG, BID
     Route: 048
  2. THYRADIN [Concomitant]
     Active Substance: LEVOTHYROXINE
     Dosage: 50 MUG, BID
     Route: 048
  3. RANMARK [Suspect]
     Active Substance: DENOSUMAB
     Indication: METASTASES TO BONE
     Dosage: 120 MG, UNK
     Route: 058
     Dates: start: 201206, end: 20150421

REACTIONS (1)
  - Osteonecrosis of jaw [Recovered/Resolved]

NARRATIVE: CASE EVENT DATE: 20140325
